FAERS Safety Report 8065597-1 (Version None)
Quarter: 2012Q1

REPORT INFORMATION
  Report Type: 
  Country: None (occurrence: None)
  Receive Date: 20120124
  Receipt Date: 20120110
  Transmission Date: 20120608
  Serious: Yes (Other)
  Sender: FDA-Public Use
  Company Number: GB-MYLANLABS-2011S1025834

PATIENT
  Age: 35 Year
  Sex: Female

DRUGS (3)
  1. CLOBAZAM [Suspect]
     Indication: CONVULSION
  2. TOPIRAMATE [Suspect]
     Indication: CONVULSION
  3. CARBAMAZEPINE [Suspect]
     Indication: CONVULSION

REACTIONS (12)
  - URINARY INCONTINENCE [None]
  - SELF ESTEEM DECREASED [None]
  - AURA [None]
  - MEMORY IMPAIRMENT [None]
  - ANXIETY [None]
  - ABNORMAL BEHAVIOUR [None]
  - TEARFULNESS [None]
  - EPILEPSY [None]
  - SLOW SPEECH [None]
  - FATIGUE [None]
  - DIPLOPIA [None]
  - STEVENS-JOHNSON SYNDROME [None]
